FAERS Safety Report 21994210 (Version 5)
Quarter: 2024Q2

REPORT INFORMATION
  Report Type: Report from Study
  Country: ES (occurrence: ES)
  Receive Date: 20230215
  Receipt Date: 20240401
  Transmission Date: 20240716
  Serious: Yes (Other)
  Sender: FDA-Public Use
  Company Number: ES-TAKEDA-2023TUS014561

PATIENT
  Age: 10 Year
  Sex: Female

DRUGS (15)
  1. TEDUGLUTIDE [Suspect]
     Active Substance: TEDUGLUTIDE
     Indication: Short-bowel syndrome
     Dosage: 0.8 MILLIGRAM, QD
     Route: 042
     Dates: start: 20180525, end: 20210602
  2. TEDUGLUTIDE [Suspect]
     Active Substance: TEDUGLUTIDE
     Indication: Short-bowel syndrome
     Dosage: 0.8 MILLIGRAM, QD
     Route: 042
     Dates: start: 20180525, end: 20210602
  3. TEDUGLUTIDE [Suspect]
     Active Substance: TEDUGLUTIDE
     Indication: Short-bowel syndrome
     Dosage: 0.8 MILLIGRAM, QD
     Route: 042
     Dates: start: 20180525, end: 20210602
  4. TEDUGLUTIDE [Suspect]
     Active Substance: TEDUGLUTIDE
     Indication: Short-bowel syndrome
     Dosage: 0.8 MILLIGRAM, QD
     Route: 042
     Dates: start: 20180525, end: 20210602
  5. TEDUGLUTIDE [Suspect]
     Active Substance: TEDUGLUTIDE
     Dosage: 1 MILLIGRAM, QD
     Route: 042
     Dates: start: 20221102
  6. TEDUGLUTIDE [Suspect]
     Active Substance: TEDUGLUTIDE
     Dosage: 1 MILLIGRAM, QD
     Route: 042
     Dates: start: 20221102
  7. TEDUGLUTIDE [Suspect]
     Active Substance: TEDUGLUTIDE
     Dosage: 1 MILLIGRAM, QD
     Route: 042
     Dates: start: 20221102
  8. TEDUGLUTIDE [Suspect]
     Active Substance: TEDUGLUTIDE
     Dosage: 1 MILLIGRAM, QD
     Route: 042
     Dates: start: 20221102
  9. AMOXICILLIN [Concomitant]
     Active Substance: AMOXICILLIN
     Indication: Odynophagia
     Dosage: UNK
     Route: 048
     Dates: start: 20211219, end: 20211222
  10. METRONIDAZOLE [Concomitant]
     Active Substance: METRONIDAZOLE
     Indication: Gastrointestinal disorder
     Dosage: 137.5 MILLIGRAM
     Route: 048
     Dates: start: 20211229
  11. METRONIDAZOLE [Concomitant]
     Active Substance: METRONIDAZOLE
     Indication: Dysbiosis
     Dosage: 150 MILLIGRAM
     Route: 048
     Dates: start: 20230809
  12. RIFAXIMIN [Concomitant]
     Active Substance: RIFAXIMIN
     Indication: Gastrointestinal disorder
     Dosage: 100 MILLIGRAM
     Route: 048
     Dates: start: 20211229
  13. RIFAXIMIN [Concomitant]
     Active Substance: RIFAXIMIN
     Indication: Dysbiosis
     Dosage: 100 MILLIGRAM
     Route: 048
     Dates: start: 20230809
  14. IRON [Concomitant]
     Active Substance: IRON
     Indication: Iron deficiency anaemia
     Dosage: UNK UNK, SINGLE
     Route: 042
     Dates: start: 20220407, end: 20220407
  15. Prodefen plus [Concomitant]
     Indication: Metabolic acidosis
     Dosage: 1 DOSAGE FORM, Q2WEEKS
     Route: 048
     Dates: start: 20230417, end: 20230809

REACTIONS (2)
  - Thrombocytopenia [Recovered/Resolved]
  - Iron deficiency [Recovered/Resolved]

NARRATIVE: CASE EVENT DATE: 20230118
